FAERS Safety Report 24241805 (Version 3)
Quarter: 2024Q3

REPORT INFORMATION
  Report Type: Report from Study
  Country: EG (occurrence: EG)
  Receive Date: 20240823
  Receipt Date: 20240905
  Transmission Date: 20241017
  Serious: Yes (Death, Other)
  Sender: ABBVIE
  Company Number: EG-JNJFOC-20240855210

PATIENT
  Age: 73 Year
  Sex: Female
  Weight: 45 kg

DRUGS (2)
  1. IBRUTINIB [Suspect]
     Active Substance: IBRUTINIB
     Indication: Haematological malignancy
     Dosage: TIME INTERVAL: 0.33333333 DAYS: IMBRUVICA CAPSULES 3 TIMES DAILY
     Route: 048
     Dates: start: 20240425, end: 20240701
  2. CORTISONE [Suspect]
     Active Substance: CORTISONE
     Indication: Product used for unknown indication
     Dosage: HALF TWICE DAILY
     Route: 048

REACTIONS (5)
  - Death [Fatal]
  - Lethargy [Unknown]
  - Anaemia [Unknown]
  - Angina pectoris [Unknown]
  - Fatigue [Unknown]

NARRATIVE: CASE EVENT DATE: 20240818
